FAERS Safety Report 19414354 (Version 1)
Quarter: 2021Q2

REPORT INFORMATION
  Report Type: Spontaneous
  Country: BE (occurrence: BE)
  Receive Date: 20210615
  Receipt Date: 20210615
  Transmission Date: 20210717
  Serious: Yes (Hospitalization)
  Sender: FDA-Public Use
  Company Number: BE-NOVOPROD-819415

PATIENT
  Age: 75 Year
  Sex: Male

DRUGS (5)
  1. OZEMPIC [Suspect]
     Active Substance: SEMAGLUTIDE
     Dosage: 0.5
     Route: 065
  2. OZEMPIC [Suspect]
     Active Substance: SEMAGLUTIDE
     Dosage: 1
     Route: 065
  3. OZEMPIC [Suspect]
     Active Substance: SEMAGLUTIDE
     Indication: PRODUCT USED FOR UNKNOWN INDICATION
     Dosage: 0.25
     Route: 065
  4. COVID?19 VACCINE [Concomitant]
     Dosage: UNK
     Route: 065
     Dates: start: 20210408
  5. COVID?19 VACCINE [Concomitant]
     Dosage: UNK
     Route: 065

REACTIONS (2)
  - Eosinophilic myocarditis [Unknown]
  - Gastroenteritis [Unknown]
